FAERS Safety Report 19241052 (Version 1)
Quarter: 2021Q2

REPORT INFORMATION
  Report Type: Spontaneous
  Country: US (occurrence: US)
  Receive Date: 20210510
  Receipt Date: 20210510
  Transmission Date: 20210717
  Serious: Yes (Other)
  Sender: FDA-Public Use
  Company Number: None

PATIENT
  Age: 76 Year
  Sex: Female
  Weight: 82.44 kg

DRUGS (22)
  1. CAPECITABINE. [Suspect]
     Active Substance: CAPECITABINE
     Indication: BREAST CANCER
     Route: 048
     Dates: start: 20210430
  2. TIMOLOL. [Concomitant]
     Active Substance: TIMOLOL
  3. IMODIUM AD [Concomitant]
     Active Substance: LOPERAMIDE HYDROCHLORIDE
  4. LASIX [Concomitant]
     Active Substance: FUROSEMIDE
  5. CITRACAL D [Concomitant]
  6. FISH OIL [Concomitant]
     Active Substance: FISH OIL
  7. SIMETHICONE (DIMETHICONE) [Concomitant]
     Active Substance: DIMETHICONE
  8. ONDANSETRON [Concomitant]
     Active Substance: ONDANSETRON
  9. REPHRESH PRO?B [Concomitant]
  10. ECONAZOLE. [Concomitant]
     Active Substance: ECONAZOLE NITRATE
  11. SIMVASTATIN. [Concomitant]
     Active Substance: SIMVASTATIN
  12. REFRESH OPTIVE [Concomitant]
     Active Substance: CARBOXYMETHYLCELLULOSE SODIUM\GLYCERIN
  13. VENLAFAXINE [Concomitant]
     Active Substance: VENLAFAXINE HYDROCHLORIDE
  14. SPIRONOLACTONE. [Concomitant]
     Active Substance: SPIRONOLACTONE
  15. KEFLEX [Concomitant]
     Active Substance: CEPHALEXIN
  16. ULTRA 30 PROBIOTIC [Concomitant]
  17. COENZYME Q10 [Concomitant]
     Active Substance: DIETARY SUPPLEMENT\UBIDECARENONE
  18. FAMOTIDINE. [Concomitant]
     Active Substance: FAMOTIDINE
  19. EQUATE EYE OINTMENT [Concomitant]
  20. AYR [Concomitant]
  21. FUROSEMIDE. [Concomitant]
     Active Substance: FUROSEMIDE
  22. ALDACTONE [Concomitant]
     Active Substance: SPIRONOLACTONE

REACTIONS (1)
  - Abdominal pain upper [None]

NARRATIVE: CASE EVENT DATE: 20210510
